FAERS Safety Report 7795342-6 (Version None)
Quarter: 2011Q4

REPORT INFORMATION
  Report Type: 
  Country: None (occurrence: None)
  Receive Date: 20111004
  Receipt Date: 20110928
  Transmission Date: 20120403
  Serious: Yes (Other)
  Sender: FDA-Public Use
  Company Number: PHHY2011CA50223

PATIENT
  Sex: Female

DRUGS (4)
  1. PREDNISONE [Concomitant]
  2. VITAMIN B-12 [Concomitant]
  3. ZOLEDRONOC ACID [Suspect]
     Indication: OSTEOPOROSIS
     Dosage: 5 MG, UNK
     Route: 042
     Dates: start: 20100817
  4. PHENOBARBITAL TAB [Concomitant]

REACTIONS (8)
  - MALAISE [None]
  - FEELING ABNORMAL [None]
  - INFUSION SITE IRRITATION [None]
  - RASH [None]
  - INFUSION SITE HAEMATOMA [None]
  - OEDEMA PERIPHERAL [None]
  - PAIN IN EXTREMITY [None]
  - INFECTION [None]
